FAERS Safety Report 17990771 (Version 2)
Quarter: 2020Q3

REPORT INFORMATION
  Report Type: Spontaneous
  Country: FR (occurrence: FR)
  Receive Date: 20200707
  Receipt Date: 20200716
  Transmission Date: 20201103
  Serious: Yes (Hospitalization, Other)
  Sender: FDA-Public Use
  Company Number: PHHY2016FR155629

PATIENT
  Age: 51 Year
  Sex: Female

DRUGS (4)
  1. NAPROXEN. [Suspect]
     Active Substance: NAPROXEN
     Indication: MUSCULOSKELETAL PAIN
     Dosage: UNK
     Route: 065
  2. RITUXIMAB. [Suspect]
     Active Substance: RITUXIMAB
     Indication: RHEUMATOID ARTHRITIS
     Dosage: 1000 MG
     Route: 042
  3. METHOTREXATE. [Suspect]
     Active Substance: METHOTREXATE
     Indication: RHEUMATOID ARTHRITIS
     Dosage: 2.5 MG,QW
     Route: 065
     Dates: start: 2011
  4. RITUXIMAB. [Suspect]
     Active Substance: RITUXIMAB
     Dosage: 2000 MG (TWO 1000 MG INFUSION EACH EVERY 6 MONTHS.)
     Route: 042
     Dates: start: 2011

REACTIONS (11)
  - Alopecia [Unknown]
  - Vomiting [Recovering/Resolving]
  - Drug intolerance [Unknown]
  - Alanine aminotransferase increased [Recovered/Resolved]
  - Hepatitis E [Recovered/Resolved]
  - Asthenia [Recovering/Resolving]
  - Antibody test positive [Recovering/Resolving]
  - Cholestasis [Recovering/Resolving]
  - Jaundice [Recovering/Resolving]
  - Aspartate aminotransferase increased [Recovered/Resolved]
  - Nausea [Recovering/Resolving]
